FAERS Safety Report 4897515-9 (Version None)
Quarter: 2005Q4

REPORT INFORMATION
  Report Type: 
  Country: None (occurrence: None)
  Receive Date: 20051223
  Receipt Date: 20050913
  Transmission Date: 20060501
  Serious: No
  Sender: FDA-Public Use
  Company Number: 05P-163-0311010-00

PATIENT
  Age: 3 Year
  Sex: Female

DRUGS (4)
  1. HUMIRA [Suspect]
     Indication: JUVENILE ARTHRITIS
     Dosage: 40 MG, TAKES 12.5MG, PER WEEK, SUBCUTANEOUS
     Route: 058
     Dates: start: 20050901
  2. METHOTREXATE SODIUM [Concomitant]
  3. IBUPROFEN [Concomitant]
  4. PREDNISONE [Concomitant]

REACTIONS (1)
  - INJECTION SITE IRRITATION [None]
